FAERS Safety Report 13922382 (Version 1)
Quarter: 2017Q3

REPORT INFORMATION
  Report Type: Spontaneous
  Country: TW (occurrence: TW)
  Receive Date: 20170830
  Receipt Date: 20170830
  Transmission Date: 20171127
  Serious: Yes (Death)
  Sender: FDA-Public Use
  Company Number: PHHY2017TW127475

PATIENT
  Age: 56 Year
  Sex: Male
  Weight: 54.6 kg

DRUGS (1)
  1. REVOLADE [Suspect]
     Active Substance: ELTROMBOPAG
     Indication: APLASTIC ANAEMIA
     Dosage: 25 MG, QD
     Route: 048
     Dates: start: 20151117

REACTIONS (2)
  - Pyrexia [Fatal]
  - Infection [Fatal]

NARRATIVE: CASE EVENT DATE: 20170714
